FAERS Safety Report 10264655 (Version 1)
Quarter: 2014Q2

REPORT INFORMATION
  Report Type: Spontaneous
  Country: US (occurrence: None)
  Receive Date: 20140624
  Receipt Date: 20140624
  Transmission Date: 20141212
  Serious: Yes (Hospitalization)
  Sender: FDA-Public Use
  Company Number: UCM201406-000104

PATIENT
  Age: 72 Year
  Sex: Male

DRUGS (7)
  1. AMLODIPINE [Suspect]
     Route: 048
  2. PAROXETINE [Suspect]
     Indication: DEPRESSION
     Route: 048
  3. VITAMIN C [Suspect]
     Route: 048
  4. ASPIRIN [Suspect]
     Route: 048
  5. LISINOPRIL [Suspect]
  6. METOPROLOL [Suspect]
     Route: 048
  7. HEPARIN (HEPARIN) (HEPARIN) [Concomitant]

REACTIONS (3)
  - Mental status changes [None]
  - Hiccups [None]
  - Somnolence [None]
